FAERS Safety Report 7329539-6 (Version None)
Quarter: 2011Q1

REPORT INFORMATION
  Report Type: 
  Country: None (occurrence: None)
  Receive Date: 20110303
  Receipt Date: 20110203
  Transmission Date: 20110831
  Serious: Yes (Death, Other)
  Sender: FDA-Public Use
  Company Number: GB-BIOGENIDEC-2010BI043203

PATIENT
  Age: 58 Year
  Sex: Female

DRUGS (8)
  1. DIAZEPAM [Concomitant]
  2. CARBAMAZEPINE [Concomitant]
  3. OMEPRAZOLE [Concomitant]
  4. MODAFINAL [Concomitant]
  5. AVONEX [Suspect]
     Indication: MULTIPLE SCLEROSIS
     Dates: start: 20070101, end: 20100101
  6. IBUPROFEN [Concomitant]
  7. ASPIRIN [Concomitant]
  8. CODYDRAMOL [Concomitant]

REACTIONS (3)
  - KIDNEY PERFORATION [None]
  - LIVER DISORDER [None]
  - HEPATIC NEOPLASM MALIGNANT [None]
